FAERS Safety Report 20854249 (Version 3)
Quarter: 2023Q2

REPORT INFORMATION
  Report Type: Report from Study
  Country: KR (occurrence: KR)
  Receive Date: 20220520
  Receipt Date: 20230413
  Transmission Date: 20230722
  Serious: Yes (Congenital Anomaly, Other)
  Sender: FDA-Public Use
  Company Number: KR-NOVARTISPH-NVSC2022KR114113

PATIENT
  Age: 0 Year
  Sex: Female
  Weight: 3.45 kg

DRUGS (1)
  1. COSENTYX [Suspect]
     Active Substance: SECUKINUMAB
     Indication: Foetal exposure during pregnancy
     Dosage: (MATERNAL EXPOSURE DURING PREGNANCY: 300 MG)
     Route: 064
     Dates: end: 20210727

REACTIONS (8)
  - Congenital hyperthyroidism [Not Recovered/Not Resolved]
  - Hypothyroidism [Unknown]
  - Goitre [Unknown]
  - Rhinorrhoea [Unknown]
  - Rash [Unknown]
  - COVID-19 [Unknown]
  - Pyrexia [Recovering/Resolving]
  - Foetal exposure during pregnancy [Unknown]

NARRATIVE: CASE EVENT DATE: 20220412
